FAERS Safety Report 5928550-7 (Version None)
Quarter: 2008Q4

REPORT INFORMATION
  Report Type: 
  Country: None (occurrence: None)
  Receive Date: 20081023
  Receipt Date: 20081013
  Transmission Date: 20090506
  Serious: Yes (Other)
  Sender: FDA-Public Use
  Company Number: US-WATSON-2008-06096

PATIENT
  Age: 30 Year
  Sex: Female

DRUGS (2)
  1. FENTANYL CITRATE [Suspect]
     Indication: EPIDURAL ANAESTHESIA
     Dosage: 2 MCG/ML, UNK
     Route: 008
     Dates: start: 20060101, end: 20060101
  2. ROPIVACAINE [Suspect]
     Dosage: 0.2%
     Route: 008
     Dates: start: 20060101, end: 20060101

REACTIONS (1)
  - NEUROPATHY PERIPHERAL [None]
